FAERS Safety Report 5381936-4 (Version None)
Quarter: 2007Q3

REPORT INFORMATION
  Report Type: 
  Country: None (occurrence: None)
  Receive Date: 20070709
  Receipt Date: 20070627
  Transmission Date: 20080115
  Serious: Yes (Other)
  Sender: FDA-Public Use
  Company Number: ES-MERCK-0706ESP00062

PATIENT
  Age: 36 Year
  Sex: Male
  Weight: 81 kg

DRUGS (12)
  1. TIMOPTIC [Suspect]
     Indication: GLAUCOMA
     Route: 047
     Dates: start: 20040101
  2. PREDNISONE [Suspect]
     Indication: PROCTOCOLITIS
     Route: 048
     Dates: start: 20000101, end: 20070501
  3. RABEPRAZOLE SODIUM [Suspect]
     Indication: PEPTIC ULCER HAEMORRHAGE
     Route: 048
     Dates: start: 20000101, end: 20070501
  4. RABEPRAZOLE SODIUM [Suspect]
     Indication: PROPHYLAXIS
     Route: 048
     Dates: start: 20000101, end: 20070501
  5. FENTANYL [Suspect]
     Indication: SPONDYLOARTHROPATHY
     Route: 061
     Dates: start: 20050101
  6. CANDESARTAN CILEXETIL [Suspect]
     Indication: ESSENTIAL HYPERTENSION
     Route: 048
     Dates: start: 20010101
  7. TRAVOPROST [Suspect]
     Indication: GLAUCOMA
     Route: 047
     Dates: start: 20040101
  8. MESALAMINE [Suspect]
     Indication: PROCTOCOLITIS
     Route: 048
     Dates: start: 20000101
  9. RISEDRONATE SODIUM [Suspect]
     Indication: BONE DISORDER
     Route: 048
     Dates: start: 20020101
  10. RISEDRONATE SODIUM [Suspect]
     Indication: CHONDROPATHY
     Route: 048
     Dates: start: 20020101
  11. CALCIUM CARBONATE AND CHOLECALCIFEROL [Suspect]
     Indication: BONE DISORDER
     Route: 048
     Dates: start: 20020101
  12. CALCIUM CARBONATE AND CHOLECALCIFEROL [Suspect]
     Indication: CHONDROPATHY
     Route: 048
     Dates: start: 20020101

REACTIONS (1)
  - GYNAECOMASTIA [None]
